FAERS Safety Report 23906004 (Version 2)
Quarter: 2024Q3

REPORT INFORMATION
  Report Type: Spontaneous
  Country: JP (occurrence: JP)
  Receive Date: 20240527
  Receipt Date: 20240718
  Transmission Date: 20241017
  Serious: No
  Sender: GLAXOSMITHKLINE
  Company Number: JP-GLAXOSMITHKLINE-JP2024JPN063038

PATIENT

DRUGS (8)
  1. LAMICTAL [Suspect]
     Active Substance: LAMOTRIGINE
     Indication: Lennox-Gastaut syndrome
     Dosage: UNK
  2. LAMICTAL [Suspect]
     Active Substance: LAMOTRIGINE
     Dosage: 50 MG IN MORNING AND 150 MG IN EVENING, BID
     Route: 048
     Dates: start: 20240227
  3. VALPROATE [Suspect]
     Active Substance: VALPROIC ACID
     Indication: Lennox-Gastaut syndrome
     Dosage: 400 MG, TID
     Route: 048
     Dates: start: 20240227
  4. PANTETHINE [Concomitant]
     Active Substance: PANTETHINE
     Dosage: 1 G, TID
     Route: 048
     Dates: start: 20240227
  5. INOVELON [Concomitant]
     Active Substance: RUFINAMIDE
     Indication: Epilepsy
     Dosage: 800 MG, BID
     Route: 048
     Dates: start: 20240227
  6. FYCOMPA [Concomitant]
     Active Substance: PERAMPANEL
     Indication: Epilepsy
     Dosage: 6 MG, 1D
     Route: 048
     Dates: start: 20240227
  7. MIYA-BM [Concomitant]
     Active Substance: CLOSTRIDIUM BUTYRICUM SPORES STRAIN M-55
     Indication: Gastrointestinal disorder
     Dosage: 20 MG, TID
     Route: 048
     Dates: start: 20240227
  8. PRIMPERAN [Concomitant]
     Active Substance: METOCLOPRAMIDE HYDROCHLORIDE
     Dosage: 5 MG, TID
     Route: 048
     Dates: start: 20240227

REACTIONS (2)
  - White blood cell count decreased [Recovered/Resolved]
  - Surgery [Unknown]

NARRATIVE: CASE EVENT DATE: 20240423
